FAERS Safety Report 16214514 (Version 2)
Quarter: 2019Q3

REPORT INFORMATION
  Report Type: Report from Study
  Country: US (occurrence: US)
  Receive Date: 20190418
  Receipt Date: 20190920
  Transmission Date: 20191004
  Serious: Yes (Hospitalization)
  Sender: FDA-Public Use
  Company Number: US-ACTELION-A-NJ2019-188268

PATIENT
  Age: 73 Year
  Sex: Female

DRUGS (1)
  1. OPSUMIT [Suspect]
     Active Substance: MACITENTAN
     Indication: PULMONARY ARTERIAL HYPERTENSION
     Dosage: 10 MG, QD
     Route: 048
     Dates: start: 20190111

REACTIONS (6)
  - Dyspnoea [Recovered/Resolved]
  - Catheter placement [Recovered/Resolved]
  - Pneumonia [Recovered/Resolved]
  - Pulmonary hypertension [Unknown]
  - Respiratory syncytial virus infection [Recovered/Resolved]
  - Unevaluable event [Recovered/Resolved]

NARRATIVE: CASE EVENT DATE: 20190211
